FAERS Safety Report 16842820 (Version 2)
Quarter: 2019Q4

REPORT INFORMATION
  Report Type: Spontaneous
  Country: FR (occurrence: FR)
  Receive Date: 20190924
  Receipt Date: 20191002
  Transmission Date: 20200122
  Serious: Yes (Other)
  Sender: FDA-Public Use
  Company Number: FR-TEVA-2019-FR-1112048

PATIENT
  Age: 76 Year
  Sex: Male

DRUGS (3)
  1. 5-FLUOROURACIL [Concomitant]
     Active Substance: FLUOROURACIL
     Indication: COLON CANCER METASTATIC
     Route: 065
  2. OXALIPLATIN. [Suspect]
     Active Substance: OXALIPLATIN
     Indication: COLON CANCER METASTATIC
     Route: 065
  3. SOLU-MEDROL [Suspect]
     Active Substance: METHYLPREDNISOLONE SODIUM SUCCINATE
     Indication: COLON CANCER METASTATIC
     Route: 065

REACTIONS (5)
  - Haemoglobinuria [Unknown]
  - Haemolytic anaemia [Unknown]
  - Acute kidney injury [Unknown]
  - Antibody test positive [Unknown]
  - Dyspnoea [Unknown]
